FAERS Safety Report 8231156-0 (Version None)
Quarter: 2012Q1

REPORT INFORMATION
  Report Type: 
  Country: None (occurrence: None)
  Receive Date: 20120323
  Receipt Date: 20120323
  Transmission Date: 20120608
  Serious: Yes (Life-Threatening, Hospitalization)
  Sender: FDA-Public Use
  Company Number: None

PATIENT
  Age: 69 Year
  Sex: Male
  Weight: 103.41 kg

DRUGS (1)
  1. PROTAMINE SULFATE [Suspect]
     Dosage: 20.0 MG
     Route: 040

REACTIONS (1)
  - HYPOTENSION [None]
